FAERS Safety Report 10994030 (Version 2)
Quarter: 2015Q3

REPORT INFORMATION
  Report Type: Report from Study
  Country: AU (occurrence: AU)
  Receive Date: 20150407
  Receipt Date: 20150729
  Transmission Date: 20151125
  Serious: Yes (Death, Other)
  Sender: FDA-Public Use
  Company Number: AU-BAYER-2015-060619

PATIENT
  Age: 75 Year
  Sex: Male

DRUGS (1)
  1. ADEMPAS [Suspect]
     Active Substance: RIOCIGUAT
     Indication: PULMONARY HYPERTENSION
     Dosage: 1 MG, TID (TDS)
     Route: 048
     Dates: start: 20150305, end: 201505

REACTIONS (8)
  - Heart rate increased [None]
  - Heart rate increased [Not Recovered/Not Resolved]
  - Hypotension [None]
  - Respiratory failure [Fatal]
  - Dyspnoea exertional [None]
  - Chest discomfort [None]
  - Feeling abnormal [None]
  - Dizziness [None]

NARRATIVE: CASE EVENT DATE: 20150317
